FAERS Safety Report 19883454 (Version 1)
Quarter: 2021Q3

REPORT INFORMATION
  Report Type: Spontaneous
  Country: CN (occurrence: CN)
  Receive Date: 20210926
  Receipt Date: 20210926
  Transmission Date: 20211014
  Serious: Yes (Hospitalization, Other)
  Sender: FDA-Public Use
  Company Number: CN-ABBVIE-21K-035-4093492-00

PATIENT
  Age: 36 Year
  Sex: Male
  Weight: 74 kg

DRUGS (10)
  1. LITHIUM CARBONATE. [Suspect]
     Active Substance: LITHIUM CARBONATE
     Indication: MANIA
  2. DEPAKINE CHRONO [Suspect]
     Active Substance: VALPROATE SODIUM
     Indication: MANIA
  3. CLONAZEPAM. [Suspect]
     Active Substance: CLONAZEPAM
     Indication: BIPOLAR DISORDER
     Dosage: HS
     Route: 048
     Dates: start: 20180626, end: 20180725
  4. OLANZAPINE. [Suspect]
     Active Substance: OLANZAPINE
     Indication: BIPOLAR DISORDER
     Route: 048
     Dates: start: 20180609, end: 20180725
  5. LORAZEPAM. [Suspect]
     Active Substance: LORAZEPAM
     Indication: BIPOLAR DISORDER
     Route: 048
     Dates: start: 20180609, end: 20180626
  6. CLONAZEPAM. [Suspect]
     Active Substance: CLONAZEPAM
     Indication: MANIA
  7. DEPAKINE CHRONO [Suspect]
     Active Substance: VALPROATE SODIUM
     Indication: BIPOLAR DISORDER
     Route: 048
     Dates: start: 20180609, end: 20180626
  8. LORAZEPAM. [Suspect]
     Active Substance: LORAZEPAM
     Indication: MANIA
  9. OLANZAPINE. [Suspect]
     Active Substance: OLANZAPINE
     Indication: MANIA
  10. LITHIUM CARBONATE. [Suspect]
     Active Substance: LITHIUM CARBONATE
     Indication: BIPOLAR DISORDER
     Route: 048
     Dates: start: 20180626, end: 20180725

REACTIONS (3)
  - Hypokalaemia [Recovering/Resolving]
  - Diabetes insipidus [Recovering/Resolving]
  - Sinus bradycardia [Recovering/Resolving]

NARRATIVE: CASE EVENT DATE: 20180703
